FAERS Safety Report 7437381-0 (Version None)
Quarter: 2011Q2

REPORT INFORMATION
  Report Type: 
  Country: None (occurrence: None)
  Receive Date: 20110426
  Receipt Date: 20110421
  Transmission Date: 20111010
  Serious: Yes (Death, Hospitalization)
  Sender: FDA-Public Use
  Company Number: PHHY2011US33872

PATIENT
  Sex: Female

DRUGS (14)
  1. REVLIMID [Suspect]
     Dosage: 15 MG, EVERY OTHER DAY
     Route: 048
     Dates: start: 20101108, end: 20101220
  2. REVLIMID [Suspect]
     Dosage: 15 MG, QD EVERY 28 DAYS
     Route: 048
     Dates: start: 20101007, end: 20101108
  3. PLECTON [Concomitant]
     Dosage: UNK
  4. GABAPENTIN [Concomitant]
     Dosage: UNK
  5. PRINIVIL [Concomitant]
     Dosage: UNK
  6. CYMBALTA [Concomitant]
     Dosage: UNK
  7. ZOMETA [Suspect]
     Dosage: 4 MG, EVERY 28 DAYS
     Route: 042
     Dates: start: 20101216
  8. DECADRON [Concomitant]
     Dosage: UNK
  9. BETAPACE [Concomitant]
     Dosage: UNK
  10. PLAVIX [Concomitant]
     Dosage: UNK
  11. REVLIMID [Suspect]
     Indication: MULTIPLE MYELOMA
     Dosage: 15 MG, QD
     Route: 048
     Dates: start: 20101013
  12. LEVOTHYROXINE SODIUM [Concomitant]
     Dosage: UNK
  13. RESTORIL [Concomitant]
     Dosage: UNK
  14. LIPITOR [Concomitant]
     Dosage: UNK

REACTIONS (1)
  - RENAL FAILURE ACUTE [None]
